FAERS Safety Report 19768052 (Version 3)
Quarter: 2021Q4

REPORT INFORMATION
  Report Type: Spontaneous
  Country: DE (occurrence: DE)
  Receive Date: 20210830
  Receipt Date: 20211007
  Transmission Date: 20220303
  Serious: Yes (Life-Threatening, Other)
  Sender: FDA-Public Use
  Company Number: DE-GE HEALTHCARE LIFE SCIENCES-2021CSU004143

PATIENT

DRUGS (4)
  1. IOHEXOL [Suspect]
     Active Substance: IOHEXOL
     Indication: Catheterisation cardiac
     Dosage: 50 ML, SINGLE
     Route: 013
     Dates: start: 20210818, end: 20210818
  2. IOHEXOL [Suspect]
     Active Substance: IOHEXOL
     Indication: Angiocardiogram
  3. IOHEXOL [Suspect]
     Active Substance: IOHEXOL
     Indication: Coronary artery disease
  4. IOHEXOL [Suspect]
     Active Substance: IOHEXOL
     Indication: Arteriosclerosis coronary artery

REACTIONS (3)
  - Air embolism [Recovered/Resolved]
  - Circulatory collapse [Recovered/Resolved]
  - Product administration error [Recovered/Resolved]

NARRATIVE: CASE EVENT DATE: 20210818
